FAERS Safety Report 7936423-3 (Version None)
Quarter: 2011Q4

REPORT INFORMATION
  Report Type: 
  Country: None (occurrence: None)
  Receive Date: 20111123
  Receipt Date: 20111111
  Transmission Date: 20120403
  Serious: Yes (Hospitalization)
  Sender: FDA-Public Use
  Company Number: JP-SANOFI-AVENTIS-2011SA075001

PATIENT
  Age: 70 Year
  Sex: Male
  Weight: 57 kg

DRUGS (4)
  1. PLAVIX [Suspect]
     Indication: CEREBRAL THROMBOSIS
     Route: 048
     Dates: start: 20110627, end: 20110720
  2. FLUTICASONE PROPIONATE/SALMETEROL XINAFOATE [Concomitant]
  3. NITRAZEPAM [Concomitant]
  4. CANDESARTAN CILEXETIL [Concomitant]

REACTIONS (1)
  - LIVER DISORDER [None]
